FAERS Safety Report 13568362 (Version 1)
Quarter: 2017Q2

REPORT INFORMATION
  Report Type: Spontaneous
  Country: US (occurrence: US)
  Receive Date: 20170522
  Receipt Date: 20170522
  Transmission Date: 20170830
  Serious: Yes (Hospitalization)
  Sender: FDA-Public Use
  Company Number: None

PATIENT
  Age: 59 Year
  Sex: Male
  Weight: 62.7 kg

DRUGS (12)
  1. PROZAC [Concomitant]
     Active Substance: FLUOXETINE HYDROCHLORIDE
  2. TAMSULOSIN [Concomitant]
     Active Substance: TAMSULOSIN
  3. PRILOSEC [Concomitant]
     Active Substance: OMEPRAZOLE MAGNESIUM
  4. ERGOCALCIFEROL (DRISDOL) [Concomitant]
  5. LIDOCAINE (LIDODERM) [Concomitant]
  6. TYLENOL [Concomitant]
     Active Substance: ACETAMINOPHEN
  7. BUPROPRION (WELLBUTRIN) [Concomitant]
  8. DELTASONE [Concomitant]
     Active Substance: PREDNISONE
  9. BUSPAR [Concomitant]
     Active Substance: BUSPIRONE HYDROCHLORIDE
  10. IBUPROFEN. [Concomitant]
     Active Substance: IBUPROFEN
  11. PEMBROLIZUMAB 200MG [Suspect]
     Active Substance: PEMBROLIZUMAB
     Indication: METASTASES TO CENTRAL NERVOUS SYSTEM
     Route: 042
     Dates: start: 20161212, end: 20170502
  12. SIMVASTIN (ZOCOR) [Concomitant]

REACTIONS (9)
  - Nausea [None]
  - Malaise [None]
  - Weight decreased [None]
  - Vomiting [None]
  - Hypophagia [None]
  - Hypotension [None]
  - Decreased appetite [None]
  - Fatigue [None]
  - Adrenal insufficiency [None]

NARRATIVE: CASE EVENT DATE: 20170518
